FAERS Safety Report 9721589 (Version 1)
Quarter: 2013Q4

REPORT INFORMATION
  Report Type: Spontaneous
  Country: US (occurrence: US)
  Receive Date: 20131201
  Receipt Date: 20131201
  Transmission Date: 20140711
  Serious: No
  Sender: FDA-Public Use
  Company Number: US-009507513-1311USA010699

PATIENT
  Sex: Male

DRUGS (7)
  1. VICTRELIS [Suspect]
     Indication: HEPATITIS C
     Dosage: 4 DF, BID
     Route: 048
     Dates: start: 2013
  2. VICTRELIS [Suspect]
     Dosage: 4 DF, Q8H
     Dates: start: 201310, end: 2013
  3. PEGASYS [Suspect]
  4. RIBASPHERE [Suspect]
  5. VITAMINS (UNSPECIFIED) [Concomitant]
  6. PRILOSEC [Concomitant]
  7. EXCEDRIN (ACETAMINOPHEN (+) ASPIRIN (+) CAFFEINE) [Concomitant]

REACTIONS (4)
  - Nausea [Not Recovered/Not Resolved]
  - Vomiting [Not Recovered/Not Resolved]
  - Diarrhoea [Not Recovered/Not Resolved]
  - Intentional drug misuse [Unknown]
